FAERS Safety Report 8678943 (Version 6)
Quarter: 2013Q1

REPORT INFORMATION
  Report Type: Report from Study
  Country: CA (occurrence: CA)
  Receive Date: 20120723
  Receipt Date: 20130214
  Transmission Date: 20140127
  Serious: Yes (Hospitalization)
  Sender: FDA-Public Use
  Company Number: CA-ROCHE-1090540

PATIENT
  Age: 76 None
  Sex: Female
  Weight: 65 kg

DRUGS (10)
  1. ACTEMRA [Suspect]
     Indication: RHEUMATOID ARTHRITIS
     Route: 042
     Dates: start: 20120328
  2. ACTEMRA [Suspect]
     Route: 042
     Dates: start: 20121129
  3. COUMADIN [Concomitant]
  4. ARAVA [Concomitant]
     Route: 048
  5. PREDNISONE [Concomitant]
     Route: 048
  6. PERCOCET [Concomitant]
  7. ATENOLOL [Concomitant]
  8. LIPITOR [Concomitant]
  9. CALCIUM [Concomitant]
  10. HUMIRA [Concomitant]

REACTIONS (7)
  - Fall [Unknown]
  - Spinal fracture [Not Recovered/Not Resolved]
  - Bronchitis [Not Recovered/Not Resolved]
  - Candida infection [Not Recovered/Not Resolved]
  - Cystitis [Recovered/Resolved]
  - Influenza [Unknown]
  - Cough [Not Recovered/Not Resolved]
